FAERS Safety Report 15642226 (Version 1)
Quarter: 2018Q4

REPORT INFORMATION
  Report Type: Spontaneous
  Country: HU (occurrence: HU)
  Receive Date: 20181121
  Receipt Date: 20181121
  Transmission Date: 20190205
  Serious: Yes (Death, Other)
  Sender: FDA-Public Use
  Company Number: HU-TAKEDA-2018TUS033186

PATIENT
  Age: 67 Year
  Sex: Female

DRUGS (1)
  1. ICLUSIG [Suspect]
     Active Substance: PONATINIB
     Indication: CHRONIC MYELOID LEUKAEMIA
     Dosage: UNK
     Route: 048
     Dates: start: 201409

REACTIONS (10)
  - Atrial fibrillation [Fatal]
  - Ascites [Unknown]
  - Pericardial effusion [Unknown]
  - Hepatomegaly [Unknown]
  - Anaemia [Unknown]
  - Deep vein thrombosis [Unknown]
  - Chronic myeloid leukaemia transformation [Unknown]
  - Thrombocytopenia [Unknown]
  - Cardiac failure [Fatal]
  - Hepatic cyst [Unknown]

NARRATIVE: CASE EVENT DATE: 201503
